FAERS Safety Report 15364806 (Version 1)
Quarter: 2018Q3

REPORT INFORMATION
  Report Type: Report from Study
  Country: GB (occurrence: GB)
  Receive Date: 20180910
  Receipt Date: 20180910
  Transmission Date: 20181010
  Serious: Yes (Other)
  Sender: FDA-Public Use
  Company Number: GB-AMGEN-GBRSL2018082279

PATIENT
  Age: 60 Year
  Sex: Female

DRUGS (2)
  1. REPATHA [Suspect]
     Active Substance: EVOLOCUMAB
     Indication: BLOOD CHOLESTEROL INCREASED
     Dosage: 140 MG, Q2WK
     Route: 058
     Dates: start: 20180529, end: 20180613
  2. REPATHA [Suspect]
     Active Substance: EVOLOCUMAB
     Indication: TYPE IIA HYPERLIPIDAEMIA

REACTIONS (6)
  - Pharyngeal oedema [Unknown]
  - Oropharyngeal pain [Recovered/Resolved]
  - Head discomfort [Unknown]
  - Epistaxis [Unknown]
  - Headache [Recovered/Resolved]
  - Tension headache [Recovered/Resolved]

NARRATIVE: CASE EVENT DATE: 201805
